FAERS Safety Report 9566023 (Version 3)
Quarter: 2013Q4

REPORT INFORMATION
  Report Type: Spontaneous
  Country: JP (occurrence: JP)
  Receive Date: 20130930
  Receipt Date: 20131024
  Transmission Date: 20140711
  Serious: Yes (Death, Hospitalization, Other)
  Sender: FDA-Public Use
  Company Number: JP-PFIZER INC-2013279994

PATIENT
  Age: 75 Year
  Sex: Male

DRUGS (10)
  1. LYRICA [Suspect]
     Indication: POST HERPETIC NEURALGIA
     Dosage: 75 MG, 2X/DAY
     Route: 048
     Dates: start: 20130827, end: 20130923
  2. LYRICA [Suspect]
     Dosage: 150 MG, 2X/DAY
     Route: 048
     Dates: start: 20130924, end: 20130924
  3. LYRICA [Suspect]
     Dosage: 75 MG, FREQUENCY UNKNOWN
     Route: 048
     Dates: start: 20130925
  4. ATELEC [Concomitant]
     Route: 048
  5. MICARDIS [Concomitant]
     Route: 048
  6. GLIMEPIRIDE [Concomitant]
     Route: 048
  7. LIOVEL [Concomitant]
     Route: 048
  8. METHYCOBAL [Concomitant]
     Dosage: 500 UG, 3X/DAY
     Route: 048
     Dates: start: 20130920
  9. DEPAS [Concomitant]
     Dosage: 0.5 MG, 1X/DAY
     Route: 048
     Dates: start: 20130920
  10. NORITREN [Concomitant]
     Dosage: 10 MG, 2X/DAY
     Route: 048
     Dates: start: 20130920

REACTIONS (5)
  - Cardiac failure [Fatal]
  - Apnoea [Unknown]
  - Dizziness [Unknown]
  - Drug ineffective [Unknown]
  - Insomnia [Unknown]
